FAERS Safety Report 24389833 (Version 1)
Quarter: 2024Q4

REPORT INFORMATION
  Report Type: Report from Study
  Country: US (occurrence: US)
  Receive Date: 20241003
  Receipt Date: 20241003
  Transmission Date: 20250115
  Serious: Yes (Death, Other)
  Sender: ACADIA PHARMACEUTICALS
  Company Number: US-ACADIA PHARMACEUTICALS INC.-ACA-2024-PIM-005758

PATIENT
  Age: 74 Year
  Sex: Male

DRUGS (13)
  1. NUPLAZID [Suspect]
     Active Substance: PIMAVANSERIN TARTRATE
     Indication: Parkinson^s disease psychosis
     Dosage: 34 MILLIGRAM, QD
     Route: 048
     Dates: start: 202305, end: 20240916
  2. NUPLAZID [Suspect]
     Active Substance: PIMAVANSERIN TARTRATE
     Indication: Parkinson^s disease
  3. ATENOLOL [Concomitant]
     Active Substance: ATENOLOL
  4. TAMSULOSIN [Concomitant]
     Active Substance: TAMSULOSIN
  5. ALLOPURINOL [Concomitant]
     Active Substance: ALLOPURINOL
  6. FINASTERIDE [Concomitant]
     Active Substance: FINASTERIDE
  7. METFORMIN [Concomitant]
     Active Substance: METFORMIN HYDROCHLORIDE
  8. RIVASTIGMINE [Concomitant]
     Active Substance: RIVASTIGMINE
  9. CARBIDOPA LEVODOPA [Concomitant]
     Active Substance: CARBIDOPA\LEVODOPA
  10. OMEPRAZOLE [Concomitant]
     Active Substance: OMEPRAZOLE
  11. AMLODIPINE [Concomitant]
     Active Substance: AMLODIPINE BESYLATE
  12. ROSUVASTATIN [Concomitant]
     Active Substance: ROSUVASTATIN
  13. MELATONIN [Concomitant]
     Active Substance: MELATONIN

REACTIONS (2)
  - Death [Fatal]
  - Hospice care [Not Recovered/Not Resolved]

NARRATIVE: CASE EVENT DATE: 20240920
